FAERS Safety Report 16508176 (Version 1)
Quarter: 2019Q3

REPORT INFORMATION
  Report Type: Spontaneous
  Country: US (occurrence: US)
  Receive Date: 20190702
  Receipt Date: 20190702
  Transmission Date: 20191004
  Serious: No
  Sender: FDA-Public Use
  Company Number: US-ROCHE-2127827

PATIENT
  Sex: Male
  Weight: 111.23 kg

DRUGS (1)
  1. XELODA [Suspect]
     Active Substance: CAPECITABINE
     Indication: GASTRIC CANCER
     Dosage: ONGOING: UNKNOWN
     Route: 048
     Dates: start: 20180322

REACTIONS (4)
  - Dizziness [Unknown]
  - Off label use [Unknown]
  - Vomiting [Unknown]
  - Intentional product use issue [Unknown]
